FAERS Safety Report 17511205 (Version 1)
Quarter: 2020Q1

REPORT INFORMATION
  Report Type: Spontaneous
  Country: US (occurrence: US)
  Receive Date: 20200226
  Receipt Date: 20200226
  Transmission Date: 20200409
  Serious: Yes (Hospitalization)
  Sender: FDA-Public Use
  Company Number: None

PATIENT
  Age: 71 Year
  Sex: Male
  Weight: 83 kg

DRUGS (1)
  1. AMOXICILLIN (AMOXICILLIN 500MG CAP) [Suspect]
     Active Substance: AMOXICILLIN
     Indication: OTITIS MEDIA
     Dates: start: 20180822, end: 20180903

REACTIONS (4)
  - Hepatitis [None]
  - Vomiting [None]
  - Nausea [None]
  - Liver injury [None]

NARRATIVE: CASE EVENT DATE: 20180902
